FAERS Safety Report 4681407-4 (Version None)
Quarter: 2005Q2

REPORT INFORMATION
  Report Type: 
  Country: None (occurrence: None)
  Receive Date: 20050603
  Receipt Date: 20050524
  Transmission Date: 20051028
  Serious: Yes (Hospitalization)
  Sender: FDA-Public Use
  Company Number: US-JNJFOC-20050501954

PATIENT
  Sex: Female
  Weight: 47.17 kg

DRUGS (2)
  1. REMICADE [Suspect]
     Indication: CROHN'S DISEASE
     Route: 042
  2. PENTASA [Concomitant]

REACTIONS (4)
  - APPENDICECTOMY [None]
  - ILEAL ULCER [None]
  - ILEITIS [None]
  - SMALL INTESTINAL OBSTRUCTION [None]
